FAERS Safety Report 11654375 (Version 4)
Quarter: 2015Q4

REPORT INFORMATION
  Report Type: Report from Study
  Country: US (occurrence: US)
  Receive Date: 20151023
  Receipt Date: 20151224
  Transmission Date: 20160304
  Serious: Yes (Other)
  Sender: FDA-Public Use
  Company Number: US-GILEAD-2015-0177945

PATIENT
  Age: 66 Year
  Sex: Female

DRUGS (3)
  1. AMBRISENTAN [Suspect]
     Active Substance: AMBRISENTAN
     Indication: PULMONARY HYPERTENSION
     Dosage: 5 MG, QD
     Route: 065
     Dates: start: 20150812, end: 20150920
  2. AMBRISENTAN [Suspect]
     Active Substance: AMBRISENTAN
     Indication: UNDIFFERENTIATED CONNECTIVE TISSUE DISEASE
     Dosage: 10 MG, QD
     Route: 065
  3. AMBRISENTAN [Suspect]
     Active Substance: AMBRISENTAN
     Indication: CONNECTIVE TISSUE DISORDER

REACTIONS (8)
  - Chest X-ray abnormal [Unknown]
  - Oxygen saturation decreased [Unknown]
  - Pneumonia [Recovered/Resolved]
  - Respiratory disorder [Unknown]
  - Pyrexia [Unknown]
  - Pulmonary hypertension [Recovered/Resolved]
  - Malaise [Recovered/Resolved]
  - Dyspnoea [Recovered/Resolved]

NARRATIVE: CASE EVENT DATE: 20150901
